FAERS Safety Report 15886357 (Version 1)
Quarter: 2019Q1

REPORT INFORMATION
  Report Type: Spontaneous
  Country: NL (occurrence: NL)
  Receive Date: 20190129
  Receipt Date: 20190129
  Transmission Date: 20190417
  Serious: Yes (Other)
  Sender: FDA-Public Use
  Company Number: NL-VIFOR (INTERNATIONAL) INC.-VIT-2019-00684

PATIENT
  Age: 85 Year
  Sex: Female

DRUGS (4)
  1. MIRCERA [Suspect]
     Active Substance: METHOXY POLYETHYLENE GLYCOL-EPOETIN BETA
     Indication: PRODUCT USED FOR UNKNOWN INDICATION
     Route: 058
     Dates: start: 201804
  2. HUMALOG MIX75/25 [Concomitant]
     Active Substance: INSULIN LISPRO
  3. IRON [Concomitant]
     Active Substance: IRON
  4. VITAMIN D [Concomitant]
     Active Substance: CHOLECALCIFEROL

REACTIONS (1)
  - Hypoglycaemia [Not Recovered/Not Resolved]

NARRATIVE: CASE EVENT DATE: 201804
